FAERS Safety Report 14307062 (Version 1)
Quarter: 2017Q4

REPORT INFORMATION
  Report Type: Spontaneous
  Country: US (occurrence: US)
  Receive Date: 20171220
  Receipt Date: 20171220
  Transmission Date: 20180321
  Serious: No
  Sender: FDA-Public Use
  Company Number: PHEH2017US039644

PATIENT
  Sex: Male

DRUGS (1)
  1. EXELON PATCH [Suspect]
     Active Substance: RIVASTIGMINE
     Indication: PRODUCT USED FOR UNKNOWN INDICATION
     Dosage: 13.3 MG, QD, (PATCH 15 (CM2), WITH 27 MG RIVASTIGMIN BASE)
     Route: 062

REACTIONS (7)
  - Pruritus [Unknown]
  - Feeling abnormal [Unknown]
  - Insomnia [Unknown]
  - Skin irritation [Unknown]
  - Depression [Unknown]
  - Erythema [Unknown]
  - Anxiety [Unknown]
